FAERS Safety Report 13997771 (Version 1)
Quarter: 2017Q3

REPORT INFORMATION
  Report Type: Spontaneous
  Country: US (occurrence: US)
  Receive Date: 20170921
  Receipt Date: 20170921
  Transmission Date: 20171128
  Serious: No
  Sender: FDA-Public Use
  Company Number: US-PFIZER INC-2017407295

PATIENT
  Age: 52 Year
  Sex: Female
  Weight: 74.84 kg

DRUGS (4)
  1. LYRICA [Suspect]
     Active Substance: PREGABALIN
     Indication: PAIN IN EXTREMITY
  2. LYRICA [Suspect]
     Active Substance: PREGABALIN
     Indication: DISABILITY
     Dosage: 3 DF, DAILY
     Route: 048
  3. ZOLPIDEM [Concomitant]
     Active Substance: ZOLPIDEM\ZOLPIDEM TARTRATE
     Indication: INSOMNIA
     Dosage: 10 MG, 1X/DAY
     Route: 048
  4. ALPRAZOLAM. [Concomitant]
     Active Substance: ALPRAZOLAM
     Dosage: 1 MG, TID AS NEEDED. USUALLY TAKES HALF IN THE MORNING TO GET OUT OF BED, HALF AT NOON/ EVENING
     Route: 048
     Dates: start: 2013

REACTIONS (5)
  - Weight increased [Unknown]
  - Joint range of motion decreased [Unknown]
  - Intentional product use issue [Unknown]
  - Feeling abnormal [Unknown]
  - Gait disturbance [Unknown]
